FAERS Safety Report 5558274-X (Version None)
Quarter: 2007Q4

REPORT INFORMATION
  Report Type: 
  Country: None (occurrence: None)
  Receive Date: 20071214
  Receipt Date: 20071210
  Transmission Date: 20080405
  Serious: Yes (Hospitalization, Other)
  Sender: FDA-Public Use
  Company Number: JP-WYE-H01651807

PATIENT
  Age: 23 Year
  Sex: Female

DRUGS (1)
  1. INDERAL [Suspect]
     Dosage: DOSE UNKNOWN, ^TWO TABLETS^
     Route: 048
     Dates: start: 20070703

REACTIONS (2)
  - SOMNOLENCE [None]
  - SUICIDE ATTEMPT [None]
